FAERS Safety Report 11174424 (Version 1)
Quarter: 2015Q2

REPORT INFORMATION
  Report Type: Report from Study
  Country: ES (occurrence: ES)
  Receive Date: 20150609
  Receipt Date: 20150609
  Transmission Date: 20150821
  Serious: Yes (Life-Threatening)
  Sender: FDA-Public Use
  Company Number: ES-CELGENE-ESP-2015060323

PATIENT
  Age: 47 Year
  Sex: Male

DRUGS (1)
  1. ABRAXANE [Suspect]
     Active Substance: PACLITAXEL
     Indication: PRODUCT USED FOR UNKNOWN INDICATION
     Route: 041

REACTIONS (3)
  - Neutropenia [Unknown]
  - Jaundice [Unknown]
  - Disease progression [Unknown]
